FAERS Safety Report 10342055 (Version 13)
Quarter: 2015Q2

REPORT INFORMATION
  Report Type: Spontaneous
  Country: US (occurrence: US)
  Receive Date: 20140725
  Receipt Date: 20150511
  Transmission Date: 20150821
  Serious: Yes (Hospitalization, Other)
  Sender: FDA-Public Use
  Company Number: US-PFIZER INC-2014203838

PATIENT
  Age: 76 Year
  Sex: Female
  Weight: 62 kg

DRUGS (17)
  1. KEPPRA [Concomitant]
     Active Substance: LEVETIRACETAM
     Dosage: 500 MG, 2X/DAY
  2. ALDACTONE [Concomitant]
     Active Substance: SPIRONOLACTONE
     Dosage: 25 MG, DAILY (50 MG TABLET 1/2 TAB DAILY)
     Route: 048
  3. SUTENT [Suspect]
     Active Substance: SUNITINIB MALATE
     Dosage: 25 MG DAILY CYCLIC (28 DAYS ON, 14 DAYS OFF)
     Route: 048
     Dates: start: 20141006, end: 20141102
  4. SUTENT [Suspect]
     Active Substance: SUNITINIB MALATE
     Dosage: 25 MG, UNK (FIFTH CYCLE)
     Dates: start: 20141231
  5. ASPIRIN. [Concomitant]
     Active Substance: ASPIRIN
     Dosage: 81 MG, DAILY
  6. LISINOPRIL. [Concomitant]
     Active Substance: LISINOPRIL
     Indication: BLOOD PRESSURE INCREASED
     Dosage: 10 MG, 2X/DAY
     Route: 048
  7. LEVAQUIN [Suspect]
     Active Substance: LEVOFLOXACIN
     Indication: URINARY TRACT INFECTION
     Dosage: 250 MG, 1X/DAY, FOR 3 DAYS
  8. LISINOPRIL. [Concomitant]
     Active Substance: LISINOPRIL
     Dosage: UNK
  9. ONDANSETRON [Concomitant]
     Active Substance: ONDANSETRON
     Dosage: UNK
  10. SUTENT [Suspect]
     Active Substance: SUNITINIB MALATE
     Indication: GASTROINTESTINAL STROMAL TUMOUR
     Dosage: 25 MG DAILY CYCLIC (28 DAYS ON, 14 DAYS OFF)
     Route: 048
     Dates: start: 20140709, end: 20140806
  11. SUTENT [Suspect]
     Active Substance: SUNITINIB MALATE
     Dosage: 25 MG, DAILY
     Dates: start: 20140709, end: 20150310
  12. AMLODIPINE [Concomitant]
     Active Substance: AMLODIPINE BESYLATE
     Dosage: UNK
  13. SUTENT [Suspect]
     Active Substance: SUNITINIB MALATE
     Dosage: 25 MG DAILY CYCLIC (28 DAYS ON, 14 DAYS OFF)
     Route: 048
     Dates: start: 20140809, end: 20140915
  14. DEMECLOCYCLINE [Concomitant]
     Active Substance: DEMECLOCYCLINE
     Dosage: 300 MG, DAILY
  15. VITAMIN D3 [Concomitant]
     Active Substance: CHOLECALCIFEROL
     Dosage: 1000 AT 2 TABS DAILY
  16. VITAMIN D3 [Concomitant]
     Active Substance: CHOLECALCIFEROL
     Dosage: UNK
     Dates: start: 20140703
  17. SPIRONOLACTONE. [Concomitant]
     Active Substance: SPIRONOLACTONE
     Dosage: UNK

REACTIONS (18)
  - Blood creatinine increased [Not Recovered/Not Resolved]
  - Peripheral swelling [Recovered/Resolved]
  - Blood glucose fluctuation [Recovered/Resolved]
  - Hyponatraemia [Recovering/Resolving]
  - Gastrooesophageal reflux disease [Unknown]
  - Hypertension [Recovered/Resolved]
  - Dysgeusia [Not Recovered/Not Resolved]
  - Back pain [Recovered/Resolved]
  - Urinary tract infection [Recovered/Resolved]
  - Glossodynia [Recovered/Resolved]
  - Sensation of foreign body [Unknown]
  - Blood sodium decreased [Recovered/Resolved]
  - Fatigue [Recovered/Resolved]
  - Nausea [Recovered/Resolved]
  - Hypotension [Recovered/Resolved]
  - Joint swelling [Recovered/Resolved]
  - Myalgia [Recovered/Resolved]
  - Coating in mouth [Recovered/Resolved]

NARRATIVE: CASE EVENT DATE: 2014
